FAERS Safety Report 6807898-8 (Version None)
Quarter: 2010Q2

REPORT INFORMATION
  Report Type: 
  Country: None (occurrence: None)
  Receive Date: 20100629
  Receipt Date: 20090315
  Transmission Date: 20101027
  Serious: No
  Sender: FDA-Public Use
  Company Number: US-PFIZER INC-2008157256

PATIENT
  Sex: Male
  Weight: 72.6 kg

DRUGS (13)
  1. ZYVOX [Interacting]
     Indication: PNEUMONIA
     Dosage: 600 MG, 2X/DAY
     Route: 048
     Dates: start: 20081212, end: 20081214
  2. LEXAPRO [Interacting]
     Indication: DEPRESSION
     Dosage: 20 MG, 1X/DAY
  3. FOSAMAX [Concomitant]
     Dosage: UNK
  4. ZOCOR [Concomitant]
     Dosage: UNK
  5. LEVAQUIN [Concomitant]
     Dosage: UNK
  6. RESTORIL [Concomitant]
     Dosage: UNK
  7. VALTREX [Concomitant]
     Dosage: UNK
  8. LASIX [Concomitant]
     Dosage: UNK
  9. POTASSIUM [Concomitant]
     Dosage: UNK
  10. AMARYL [Concomitant]
     Dosage: UNK
  11. TRICOR [Concomitant]
     Dosage: UNK
  12. MUCINEX [Concomitant]
     Dosage: UNK
  13. PROCRIT [Suspect]
     Dosage: UNK

REACTIONS (4)
  - DIPLOPIA [None]
  - DRUG INTERACTION [None]
  - VISION BLURRED [None]
  - VISUAL ACUITY REDUCED [None]
